FAERS Safety Report 21684018 (Version 1)
Quarter: 2022Q4

REPORT INFORMATION
  Report Type: Other
  Country: None (occurrence: DE)
  Receive Date: 20221205
  Receipt Date: 20221205
  Transmission Date: 20230113
  Serious: Yes (Other)
  Sender: FDA-Public Use
  Company Number: DE-Air Products and Chemicals, Inc. -2135551

PATIENT
  Age: 59 Year

DRUGS (1)
  1. OXYGEN [Suspect]
     Active Substance: OXYGEN

REACTIONS (2)
  - Hypotension [None]
  - Rhabdomyolysis [None]
